FAERS Safety Report 10422116 (Version 1)
Quarter: 2014Q3

REPORT INFORMATION
  Report Type: Spontaneous
  Country: US (occurrence: US)
  Receive Date: 20140901
  Receipt Date: 20140901
  Transmission Date: 20150326
  Serious: No
  Sender: FDA-Public Use
  Company Number: US-SA-2014SA058142

PATIENT
  Age: 78 Year

DRUGS (5)
  1. COUMADIN [Concomitant]
     Active Substance: WARFARIN SODIUM
     Dosage: I TAKE BRAND COUMADIN 12 MG TUO, FRI1 SAT AND 13 MGMON, WED, THUR, AND SAT.
  2. AVAPRO [Suspect]
     Active Substance: IRBESARTAN
     Indication: PRODUCT USED FOR UNKNOWN INDICATION
     Dosage: POTENCY : 150 MG
     Route: 065
  3. PROTONIX [Concomitant]
     Active Substance: PANTOPRAZOLE SODIUM
  4. COUMADIN [Concomitant]
     Active Substance: WARFARIN SODIUM
     Dosage: I TAKE BRAND COUMADIN 12 MG TUO, FRI1 SAT AND 13 MGMON, WED, THUR, AND SAT.
  5. AVAPRO [Suspect]
     Active Substance: IRBESARTAN
     Indication: PRODUCT USED FOR UNKNOWN INDICATION
     Route: 065
     Dates: start: 2005

REACTIONS (4)
  - Myalgia [Unknown]
  - Blood pressure decreased [Unknown]
  - Dyspepsia [Unknown]
  - Abdominal discomfort [Unknown]
